FAERS Safety Report 8906052 (Version 1)
Quarter: 2012Q4

REPORT INFORMATION
  Report Type: 
  Country: US (occurrence: US)
  Receive Date: 20121111
  Receipt Date: 20121111
  Transmission Date: 20130627
  Serious: No
  Sender: FDA-Public Use
  Company Number: US-009507513-1211USA001989

PATIENT
  Age: 80 Year
  Sex: Male

DRUGS (2)
  1. UNSPECIFIED INGREDIENT [Suspect]
     Indication: METASTATIC MALIGNANT MELANOMA
  2. SODIUM STIBOGLUCONATE [Concomitant]
     Indication: METASTATIC MALIGNANT MELANOMA

REACTIONS (3)
  - Disease progression [Unknown]
  - Drug ineffective [Unknown]
  - Pneumonia [Unknown]
